FAERS Safety Report 13226305 (Version 1)
Quarter: 2017Q1

REPORT INFORMATION
  Report Type: Spontaneous
  Country: US (occurrence: US)
  Receive Date: 20170213
  Receipt Date: 20170213
  Transmission Date: 20170428
  Serious: Yes (Other)
  Sender: FDA-Public Use
  Company Number: None

PATIENT
  Age: 50 Year
  Sex: Female
  Weight: 65.83 kg

DRUGS (8)
  1. MEDITATION [Concomitant]
  2. CALCIUM CITRATE [Concomitant]
     Active Substance: CALCIUM CITRATE
  3. GABAPENTIN. [Suspect]
     Active Substance: GABAPENTIN
     Indication: DRUG THERAPY
     Dosage: 3 PLUS 3X DAY + 3 AT NIGHT = 6, MOUTH?
     Route: 048
     Dates: start: 20170110, end: 20170118
  4. VITAMIN C [Concomitant]
     Active Substance: ASCORBIC ACID
  5. NORETHINDRONE. [Concomitant]
     Active Substance: NORETHINDRONE
  6. VITAMIN D3 [Concomitant]
     Active Substance: CHOLECALCIFEROL
  7. GABAPENTIN. [Suspect]
     Active Substance: GABAPENTIN
     Indication: PAIN
     Dosage: 3 PLUS 3X DAY + 3 AT NIGHT = 6, MOUTH?
     Route: 048
     Dates: start: 20170110, end: 20170118
  8. HEAT PAD [Concomitant]

REACTIONS (10)
  - Mood altered [None]
  - Drug ineffective [None]
  - Eye pain [None]
  - Crying [None]
  - Thinking abnormal [None]
  - Dizziness [None]
  - Depression [None]
  - Coordination abnormal [None]
  - Fatigue [None]
  - Peripheral swelling [None]

NARRATIVE: CASE EVENT DATE: 20170114
